FAERS Safety Report 25725197 (Version 2)
Quarter: 2025Q3

REPORT INFORMATION
  Report Type: Report from Study
  Country: US (occurrence: US)
  Receive Date: 20250826
  Receipt Date: 20250918
  Transmission Date: 20251020
  Serious: No
  Sender: SUNOVION
  Company Number: US-SMPA-2025SPA010717

PATIENT
  Age: 86 Year
  Sex: Male

DRUGS (10)
  1. ORGOVYX [Suspect]
     Active Substance: RELUGOLIX
     Indication: Prostate cancer
     Route: 048
     Dates: start: 20250806, end: 20250806
  2. ORGOVYX [Suspect]
     Active Substance: RELUGOLIX
     Route: 048
  3. AMLODIPINE [Concomitant]
     Active Substance: AMLODIPINE BESYLATE
  4. ATORVASTATIN [Concomitant]
     Active Substance: ATORVASTATIN
  5. FAMOTIDINE [Concomitant]
     Active Substance: FAMOTIDINE
  6. LOSARTAN [Concomitant]
     Active Substance: LOSARTAN
  7. MYRBETRIQ [Concomitant]
     Active Substance: MIRABEGRON
  8. TADALAFIL [Concomitant]
     Active Substance: TADALAFIL
  9. HYDROCHLOROTHIAZIDE\TRIAMTERENE [Concomitant]
     Active Substance: HYDROCHLOROTHIAZIDE\TRIAMTERENE
  10. MELATONIN [Concomitant]
     Active Substance: MELATONIN

REACTIONS (6)
  - Oropharyngeal pain [Unknown]
  - Feeling hot [Recovered/Resolved]
  - Loss of libido [Unknown]
  - Insomnia [Unknown]
  - Hot flush [Recovered/Resolved]
  - Flushing [Unknown]
